FAERS Safety Report 25667329 (Version 1)
Quarter: 2025Q3

REPORT INFORMATION
  Report Type: Spontaneous
  Country: US (occurrence: US)
  Receive Date: 20250811
  Receipt Date: 20250811
  Transmission Date: 20251020
  Serious: Yes (Hospitalization)
  Sender: PFIZER
  Company Number: US-PFIZER INC-PV202300176788

PATIENT
  Age: 80 Year
  Sex: Female

DRUGS (9)
  1. MEKTOVI [Suspect]
     Active Substance: BINIMETINIB
     Indication: Malignant melanoma
     Dosage: 15 MG, 2X/DAY
     Route: 048
     Dates: start: 20230908, end: 20231016
  2. MEKTOVI [Suspect]
     Active Substance: BINIMETINIB
     Dosage: 15 MG, 2X/DAY
     Route: 048
     Dates: start: 20231016
  3. MEKTOVI [Suspect]
     Active Substance: BINIMETINIB
     Dosage: TAKE 2 TABLETS (30 MG TOTAL)TWICE DAILY
     Route: 048
     Dates: start: 20250603
  4. MEKTOVI [Suspect]
     Active Substance: BINIMETINIB
     Dosage: TAKE 2 TABLETS (30 MG TOTAL) TWICE DAILY
     Route: 048
     Dates: start: 20250701
  5. BRAFTOVI [Suspect]
     Active Substance: ENCORAFENIB
     Indication: Malignant melanoma
     Dosage: 225 MG, DAILY
     Route: 048
     Dates: start: 20230908, end: 20231016
  6. BRAFTOVI [Suspect]
     Active Substance: ENCORAFENIB
     Dosage: 225 MG, DAILY
     Route: 048
     Dates: start: 20231016
  7. BRAFTOVI [Suspect]
     Active Substance: ENCORAFENIB
     Dosage: TAKE 4 CAPSULES (300 MG TOTAL) DAILY TAKE ALL CAPSULES TOGETHER AS A SINGLE DOSE
     Route: 048
     Dates: start: 20250603
  8. BRAFTOVI [Suspect]
     Active Substance: ENCORAFENIB
     Dosage: TAKE 4 CAPSULES (300 MG TOTAL) DAILY TAKE ALL CAPSULES TOGETHER AS A SINGLE DOSE
     Route: 048
     Dates: start: 20250701
  9. LOMOTIL [Concomitant]
     Active Substance: ATROPINE SULFATE\DIPHENOXYLATE HYDROCHLORIDE
     Indication: Diarrhoea
     Dosage: 1 DF, 4X/DAY
     Route: 048
     Dates: start: 20241004

REACTIONS (2)
  - Fall [Unknown]
  - Pain in extremity [Unknown]
